FAERS Safety Report 7164176-8 (Version None)
Quarter: 2010Q4

REPORT INFORMATION
  Report Type: 
  Country: None (occurrence: None)
  Receive Date: 20101215
  Receipt Date: 20101202
  Transmission Date: 20110411
  Serious: Yes (Other)
  Sender: FDA-Public Use
  Company Number: US-PFIZER INC-2010163777

PATIENT
  Age: 28 Year
  Sex: Male
  Weight: 81.6 kg

DRUGS (1)
  1. FIBERCON [Suspect]
     Indication: IRRITABLE BOWEL SYNDROME
     Dosage: 2 DF, 1X/DAY
     Route: 048
     Dates: start: 20101129, end: 20101129

REACTIONS (2)
  - ABDOMINAL PAIN UPPER [None]
  - RECTAL HAEMORRHAGE [None]
